FAERS Safety Report 18496329 (Version 3)
Quarter: 2020Q4

REPORT INFORMATION
  Report Type: Other
  Country: CA (occurrence: CA)
  Receive Date: 20201112
  Receipt Date: 20201118
  Transmission Date: 20210114
  Serious: No
  Sender: FDA-Public Use
  Company Number: CA-ROCHE-2436191

PATIENT
  Age: 35 Year
  Sex: Female

DRUGS (6)
  1. ACETAMINOPHEN. [Concomitant]
     Active Substance: ACETAMINOPHEN
     Indication: PREMEDICATION
     Route: 048
     Dates: start: 20191003
  2. METHYLPREDNISOLONE. [Concomitant]
     Active Substance: METHYLPREDNISOLONE
     Indication: PREMEDICATION
     Route: 042
     Dates: start: 20191003
  3. OCREVUS [Suspect]
     Active Substance: OCRELIZUMAB
     Indication: RELAPSING-REMITTING MULTIPLE SCLEROSIS
     Dosage: PERFUSION NO: 1?DAY 0, 14 THEN 600 MG EVERY 6 MONTH
     Route: 042
     Dates: start: 20191003
  4. OCREVUS [Suspect]
     Active Substance: OCRELIZUMAB
     Dosage: PERFUSION NO: 4
     Route: 042
     Dates: start: 20201007
  5. OCREVUS [Suspect]
     Active Substance: OCRELIZUMAB
     Dosage: PERFUSION NO: 3
     Route: 042
     Dates: start: 20200331
  6. BENADRYL [Concomitant]
     Active Substance: DIPHENHYDRAMINE HYDROCHLORIDE
     Indication: PREMEDICATION
     Route: 048
     Dates: start: 20191003

REACTIONS (2)
  - Infusion related reaction [Not Recovered/Not Resolved]
  - COVID-19 [Recovering/Resolving]

NARRATIVE: CASE EVENT DATE: 20191003
